FAERS Safety Report 6581077-4 (Version None)
Quarter: 2010Q1

REPORT INFORMATION
  Report Type: 
  Country: None (occurrence: None)
  Receive Date: 20100215
  Receipt Date: 20100203
  Transmission Date: 20100710
  Serious: Yes (Hospitalization)
  Sender: FDA-Public Use
  Company Number: JP-NOVOPROD-290368

PATIENT
  Sex: Male
  Weight: 52 kg

DRUGS (11)
  1. LEVEMIR [Suspect]
     Indication: TYPE 2 DIABETES MELLITUS
     Dosage: 0-0-0-4
     Route: 058
     Dates: start: 20090223, end: 20090806
  2. NOVORAPID CHU FLEXPEN [Suspect]
     Indication: TYPE 2 DIABETES MELLITUS
     Dosage: 4-0-4
     Route: 058
     Dates: start: 20090223, end: 20090806
  3. SILODOSIN [Concomitant]
     Indication: POLLAKIURIA
     Dosage: 4 MG, QD
     Route: 048
     Dates: start: 20090610, end: 20090806
  4. LANTUS [Concomitant]
     Indication: TYPE 2 DIABETES MELLITUS
     Dosage: 0-0-0-18
     Route: 058
     Dates: start: 20090807, end: 20090811
  5. HUMALOG [Concomitant]
     Indication: TYPE 2 DIABETES MELLITUS
     Dosage: 20-20-20
     Route: 058
     Dates: start: 20090807, end: 20090809
  6. TAKEPRON [Concomitant]
     Indication: GASTROOESOPHAGEAL REFLUX DISEASE
     Dosage: 15 MG, QD
     Dates: start: 20090807
  7. BASEN [Concomitant]
     Indication: TYPE 2 DIABETES MELLITUS
     Dosage: .9 MG, QD
     Route: 048
     Dates: start: 20090807
  8. ALLEGRA                            /01314202/ [Concomitant]
     Indication: RASH
     Dosage: 120 MG, QD
     Route: 048
     Dates: start: 20090809
  9. MELBIN                             /00082702/ [Concomitant]
     Indication: TYPE 2 DIABETES MELLITUS
  10. ACTOS [Concomitant]
     Indication: TYPE 2 DIABETES MELLITUS
     Dosage: 30 MG, QD
     Route: 048
     Dates: start: 20090810
  11. AMARYL [Concomitant]
     Indication: TYPE 2 DIABETES MELLITUS
     Dosage: 9 MG, QD
     Route: 048
     Dates: start: 20090811

REACTIONS (7)
  - ANTI-INSULIN ANTIBODY POSITIVE [None]
  - BLOOD GLUCOSE INCREASED [None]
  - DRUG HYPERSENSITIVITY [None]
  - INJECTION SITE ERYTHEMA [None]
  - INJECTION SITE INDURATION [None]
  - INJECTION SITE PRURITUS [None]
  - INJECTION SITE SWELLING [None]
